FAERS Safety Report 9108442 (Version 2)
Quarter: 2013Q3

REPORT INFORMATION
  Report Type: Report from Study
  Country: BR (occurrence: BR)
  Receive Date: 20130222
  Receipt Date: 20130823
  Transmission Date: 20140515
  Serious: No
  Sender: FDA-Public Use
  Company Number: PHHY2012BR071168

PATIENT
  Sex: Female
  Weight: 54 kg

DRUGS (4)
  1. GILENYA [Suspect]
     Indication: MULTIPLE SCLEROSIS
     Dosage: 1 DF, QD
     Route: 048
     Dates: start: 20120629, end: 20120813
  2. GILENYA [Suspect]
     Dosage: 0.5 MG, QD
     Route: 048
  3. SIMETICONE [Concomitant]
  4. ZOLPIDEM [Concomitant]
     Dosage: UNK UKN, UNK

REACTIONS (6)
  - Blood pressure decreased [Recovered/Resolved]
  - Dyspepsia [Recovering/Resolving]
  - Nausea [Recovering/Resolving]
  - Diarrhoea [Recovering/Resolving]
  - Dizziness [Recovered/Resolved]
  - Headache [Recovering/Resolving]
